FAERS Safety Report 8432706-1 (Version None)
Quarter: 2012Q2

REPORT INFORMATION
  Report Type: 
  Country: None (occurrence: None)
  Receive Date: 20120613
  Receipt Date: 20120604
  Transmission Date: 20120825
  Serious: Yes (Other)
  Sender: FDA-Public Use
  Company Number: FR-ASTRAZENECA-2012SE37463

PATIENT
  Age: 230 Month
  Sex: Male

DRUGS (3)
  1. ISOTRETINOIN [Suspect]
     Indication: ACNE
     Route: 048
     Dates: start: 20111027, end: 20111205
  2. SYMBICORT [Suspect]
     Indication: ASTHMA
     Route: 055
     Dates: start: 20000101
  3. ISOTRETINOIN [Suspect]
     Route: 048
     Dates: start: 20111206

REACTIONS (1)
  - ERECTILE DYSFUNCTION [None]
